FAERS Safety Report 13798830 (Version 1)
Quarter: 2017Q3

REPORT INFORMATION
  Report Type: Spontaneous
  Country: US (occurrence: US)
  Receive Date: 20170727
  Receipt Date: 20170727
  Transmission Date: 20171127
  Serious: No
  Sender: FDA-Public Use
  Company Number: US-ASTRAZENECA-2017SE75987

PATIENT
  Sex: Male
  Weight: 95.3 kg

DRUGS (2)
  1. BEVESPI AEROSPHERE [Suspect]
     Active Substance: FORMOTEROL FUMARATE\GLYCOPYRROLATE
     Indication: EMPHYSEMA
     Dosage: 2 PUFFS IN THE MORNING, DAILY
     Route: 055
  2. BEVESPI AEROSPHERE [Suspect]
     Active Substance: FORMOTEROL FUMARATE\GLYCOPYRROLATE
     Indication: EMPHYSEMA
     Dosage: 9 MCG/4.8 MCG, 2 PUFFS TWICE A DAY
     Route: 055
     Dates: start: 201707

REACTIONS (4)
  - Insomnia [Unknown]
  - Intentional product misuse [Unknown]
  - Fatigue [Unknown]
  - Drug dose omission [Unknown]
